FAERS Safety Report 7016287-5 (Version None)
Quarter: 2010Q3

REPORT INFORMATION
  Report Type: 
  Country: None (occurrence: None)
  Receive Date: 20100909
  Receipt Date: 20100505
  Transmission Date: 20110219
  Serious: No
  Sender: FDA-Public Use
  Company Number: 2010SP025592

PATIENT
  Age: 28 Year
  Sex: Female

DRUGS (4)
  1. SAPHRIS [Suspect]
     Indication: BIPOLAR DISORDER
     Dosage: 5 MG;HS
     Route: 060
     Dates: start: 20100225, end: 20100428
  2. LITHIUM (CON.) [Concomitant]
  3. PROPANOLOL (CON.) [Concomitant]
  4. LAMICTAL (CON.) [Concomitant]

REACTIONS (3)
  - INAPPROPRIATE SCHEDULE OF DRUG ADMINISTRATION [None]
  - TOOTH DISCOLOURATION [None]
  - UNDERDOSE [None]
